FAERS Safety Report 24614603 (Version 2)
Quarter: 2024Q4

REPORT INFORMATION
  Report Type: Spontaneous
  Country: DE (occurrence: DE)
  Receive Date: 20241113
  Receipt Date: 20241216
  Transmission Date: 20250114
  Serious: Yes (Other)
  Sender: ABBVIE
  Company Number: DE-ABBVIE-5996921

PATIENT
  Sex: Female

DRUGS (1)
  1. FOSCARBIDOPA\FOSLEVODOPA [Suspect]
     Active Substance: FOSCARBIDOPA\FOSLEVODOPA
     Indication: Parkinson^s disease
     Dosage: DURATION: 4 ? MONTHS.
     Route: 058

REACTIONS (12)
  - Suicidal ideation [Unknown]
  - On and off phenomenon [Not Recovered/Not Resolved]
  - Anxiety [Unknown]
  - Constipation [Unknown]
  - Immobile [Unknown]
  - Asthma [Unknown]
  - Depressed mood [Unknown]
  - Hyperhidrosis [Unknown]
  - Pain in extremity [Unknown]
  - Imperception [Unknown]
  - Nausea [Unknown]
  - Infusion site pain [Unknown]
